APPROVED DRUG PRODUCT: PROPRANOLOL HYDROCHLORIDE
Active Ingredient: PROPRANOLOL HYDROCHLORIDE
Strength: 20MG
Dosage Form/Route: TABLET;ORAL
Application: A070121 | Product #001
Applicant: SCHERING CORP SUB SCHERING PLOUGH CORP
Approved: Aug 6, 1985 | RLD: No | RS: No | Type: DISCN